FAERS Safety Report 21851533 (Version 3)
Quarter: 2023Q1

REPORT INFORMATION
  Report Type: Report from Study
  Country: US (occurrence: US)
  Receive Date: 20230112
  Receipt Date: 20230128
  Transmission Date: 20230418
  Serious: No
  Sender: FDA-Public Use
  Company Number: US-ABBVIE-4263647

PATIENT
  Age: 15 Year
  Sex: Male

DRUGS (1)
  1. HUMIRA [Suspect]
     Active Substance: ADALIMUMAB
     Indication: Product used for unknown indication
     Route: 058
     Dates: start: 202210

REACTIONS (8)
  - Injection site haemorrhage [Recovered/Resolved]
  - Malaise [Unknown]
  - Incorrect dose administered [Unknown]
  - Device issue [Unknown]
  - Fatigue [Unknown]
  - Wrong technique in product usage process [Not Recovered/Not Resolved]
  - Flatulence [Unknown]
  - Diarrhoea [Unknown]

NARRATIVE: CASE EVENT DATE: 20220107
